FAERS Safety Report 8173495-8 (Version None)
Quarter: 2012Q1

REPORT INFORMATION
  Report Type: 
  Country: None (occurrence: None)
  Receive Date: 20120223
  Receipt Date: 20120214
  Transmission Date: 20120608
  Serious: Yes (Other)
  Sender: FDA-Public Use
  Company Number: AUR-APL-2012-01012

PATIENT
  Age: 58 Year
  Sex: Female

DRUGS (2)
  1. WARAM (WARFARIN SODIUM) [Concomitant]
  2. METFORMIN HCL [Suspect]
     Indication: PRODUCT USED FOR UNKNOWN INDICATION
     Dosage: (500 MG)

REACTIONS (1)
  - MYOCARDIAL INFARCTION [None]
